FAERS Safety Report 10078931 (Version 1)
Quarter: 2014Q2

REPORT INFORMATION
  Report Type: Spontaneous
  Country: US (occurrence: None)
  Receive Date: 20140414
  Receipt Date: 20140414
  Transmission Date: 20141212
  Serious: Yes (Hospitalization)
  Sender: FDA-Public Use
  Company Number: None

PATIENT
  Age: 46 Year
  Sex: Male
  Weight: 89.81 kg

DRUGS (2)
  1. CIMZIA [Suspect]
     Indication: COLITIS ULCERATIVE
     Dosage: 2X200 PFS, EVERY 4 WEEKS, SUBCUTANEOUS
     Route: 058
     Dates: start: 20140403
  2. PREDNISON 5MG [Concomitant]

REACTIONS (1)
  - Anaphylactic shock [None]
